FAERS Safety Report 9773350 (Version 1)
Quarter: 2013Q4

REPORT INFORMATION
  Report Type: Spontaneous
  Country: US (occurrence: US)
  Receive Date: 20131219
  Receipt Date: 20131219
  Transmission Date: 20140711
  Serious: Yes (Other)
  Sender: FDA-Public Use
  Company Number: US-ACTAVIS-2013-22788

PATIENT
  Age: 43 Year
  Sex: Female
  Weight: 79.4 kg

DRUGS (4)
  1. TRAMADOL HYDROCHLORIDE (AELLC) [Suspect]
     Indication: BACK INJURY
     Dosage: UNK
     Route: 048
  2. VIIBRYD [Suspect]
     Indication: DEPRESSION
     Dosage: 20 MG, DAILY
     Route: 048
     Dates: start: 201306, end: 2013
  3. VIIBRYD [Suspect]
     Indication: ANXIETY
     Dosage: 40 MG, DAILY
     Route: 048
     Dates: start: 2013
  4. VIIBRYD [Suspect]
     Dosage: 10 MG, DAILY
     Route: 048
     Dates: start: 20131007, end: 20131008

REACTIONS (16)
  - Drug withdrawal syndrome [Unknown]
  - Amnesia [Recovered/Resolved]
  - Abnormal loss of weight [Recovered/Resolved]
  - Delusional disorder, unspecified type [Recovered/Resolved]
  - Malaise [Recovered/Resolved]
  - Panic attack [Recovered/Resolved]
  - Amnesia [Recovered/Resolved]
  - Fear [Recovered/Resolved]
  - Nightmare [Recovered/Resolved]
  - Ageusia [Recovered/Resolved]
  - Decreased appetite [Recovered/Resolved]
  - Hypoaesthesia [Recovered/Resolved]
  - Nausea [Recovered/Resolved]
  - Fatigue [Recovered/Resolved]
  - Parosmia [Not Recovered/Not Resolved]
  - Off label use [Recovered/Resolved]
